FAERS Safety Report 12195882 (Version 1)
Quarter: 2016Q1

REPORT INFORMATION
  Report Type: Spontaneous
  Country: US (occurrence: US)
  Receive Date: 20160321
  Receipt Date: 20160321
  Transmission Date: 20160526
  Serious: No
  Sender: FDA-Public Use
  Company Number: US-PFIZER INC-2016155214

PATIENT
  Age: 6 Decade
  Sex: Female
  Weight: 49.9 kg

DRUGS (10)
  1. BONIVA [Concomitant]
     Active Substance: IBANDRONATE SODIUM
     Indication: HORMONE LEVEL ABNORMAL
  2. ACETAMINOPHEN. [Concomitant]
     Active Substance: ACETAMINOPHEN
     Dosage: 325 MG, 3X/DAY
  3. FENTANYL. [Concomitant]
     Active Substance: FENTANYL
     Dosage: 50MG PATCH
  4. FLECTOR [Suspect]
     Active Substance: DICLOFENAC EPOLAMINE
     Indication: MUSCLE SPASMS
  5. FLECTOR [Suspect]
     Active Substance: DICLOFENAC EPOLAMINE
     Indication: PAIN
     Dosage: APPLIES TO BACK AND SHOULDER MAYBE TWICE A MONTH
  6. TRAZODONE [Concomitant]
     Active Substance: TRAZODONE HYDROCHLORIDE
     Dosage: UNK
  7. FLECTOR [Suspect]
     Active Substance: DICLOFENAC EPOLAMINE
     Indication: ARTHRITIS
  8. AMBIEN [Concomitant]
     Active Substance: ZOLPIDEM TARTRATE
     Dosage: UNK
  9. HYDROCODONE [Concomitant]
     Active Substance: HYDROCODONE
     Indication: PAIN
     Dosage: HYDROCODONE 10MG 3X/DAY
  10. VALIUM [Concomitant]
     Active Substance: DIAZEPAM
     Dosage: DOSE IS 10 OR 12, SHE IS NOT SURE

REACTIONS (4)
  - Expired product administered [Not Recovered/Not Resolved]
  - Weight decreased [Unknown]
  - Scoliosis [Unknown]
  - Wrong technique in product usage process [Unknown]
